FAERS Safety Report 12707716 (Version 2)
Quarter: 2016Q4

REPORT INFORMATION
  Report Type: Spontaneous
  Country: JP (occurrence: JP)
  Receive Date: 20160901
  Receipt Date: 20161014
  Transmission Date: 20170207
  Serious: Yes (Hospitalization)
  Sender: FDA-Public Use
  Company Number: JP-ELI_LILLY_AND_COMPANY-JP201608010926

PATIENT
  Age: 91 Year
  Sex: Male

DRUGS (8)
  1. AMLODIN [Concomitant]
     Active Substance: AMLODIPINE BESYLATE
     Dosage: 5 MG, UNK
     Route: 048
  2. BASEN                              /01290601/ [Concomitant]
     Active Substance: VOGLIBOSE
     Dosage: 0.3 MG, TID
     Route: 048
  3. TANATRIL [Concomitant]
     Active Substance: IMIDAPRIL
     Dosage: 5 MG, UNK
     Route: 048
  4. MICOMBI COMBINATION [Concomitant]
     Active Substance: HYDROCHLOROTHIAZIDE\TELMISARTAN
     Dosage: 1 DF, UNK
     Route: 048
  5. TRAZENTA [Concomitant]
     Active Substance: LINAGLIPTIN
     Dosage: 5 MG, UNK
     Route: 048
  6. LOXONIN [Concomitant]
     Active Substance: LOXOPROFEN SODIUM
     Dosage: 60 MG, TID
     Route: 048
  7. TRULICITY [Suspect]
     Active Substance: DULAGLUTIDE
     Indication: TYPE 2 DIABETES MELLITUS
     Dosage: 0.75 MG, WEEKLY (1/W)
     Route: 058
     Dates: start: 20160616, end: 201608
  8. MUCOSTA [Concomitant]
     Active Substance: REBAMIPIDE
     Dosage: 100 MG, TID
     Route: 048

REACTIONS (8)
  - Bradyarrhythmia [Unknown]
  - Diarrhoea [Recovering/Resolving]
  - Decreased appetite [Unknown]
  - Dehydration [Unknown]
  - Hypokalaemia [Recovering/Resolving]
  - Pyrexia [Unknown]
  - Blood glucose increased [Unknown]
  - Acute kidney injury [Recovering/Resolving]

NARRATIVE: CASE EVENT DATE: 20160721
